FAERS Safety Report 23131333 (Version 2)
Quarter: 2023Q4

REPORT INFORMATION
  Report Type: Spontaneous
  Country: US (occurrence: US)
  Receive Date: 20231031
  Receipt Date: 20231113
  Transmission Date: 20240109
  Serious: Yes (Life-Threatening, Hospitalization)
  Sender: FDA-Public Use
  Company Number: US-TEVA-2023-US-2940282

PATIENT
  Age: 85 Year
  Sex: Female

DRUGS (1)
  1. LISINOPRIL [Suspect]
     Active Substance: LISINOPRIL
     Indication: Hypertension
     Route: 065

REACTIONS (5)
  - Small intestinal obstruction [Recovered/Resolved]
  - Respiratory distress [Unknown]
  - Stridor [Unknown]
  - Angioedema [Recovering/Resolving]
  - Intestinal angioedema [Recovering/Resolving]
